FAERS Safety Report 6026262-5 (Version None)
Quarter: 2008Q4

REPORT INFORMATION
  Report Type: 
  Country: None (occurrence: None)
  Receive Date: 20081230
  Receipt Date: 20081217
  Transmission Date: 20090506
  Serious: Yes (Death, Other)
  Sender: FDA-Public Use
  Company Number: 08P-062-0484439-00

PATIENT
  Age: 4 Month
  Sex: Male

DRUGS (9)
  1. SYNAGIS [Suspect]
     Indication: ANTIVIRAL PROPHYLAXIS
     Dosage: (100 MG,1 IN 1 M)
     Dates: start: 20080728, end: 20080728
  2. SYNAGIS [Suspect]
     Indication: IMMUNISATION
     Dosage: (100 MG,1 IN 1 M)
     Dates: start: 20080728, end: 20080728
  3. SYNAGIS [Suspect]
     Indication: ANTIVIRAL PROPHYLAXIS
     Dosage: (100 MG,1 IN 1 M)
     Dates: start: 20080826, end: 20080826
  4. SYNAGIS [Suspect]
     Indication: IMMUNISATION
     Dosage: (100 MG,1 IN 1 M)
     Dates: start: 20080826, end: 20080826
  5. SYNAGIS [Suspect]
     Indication: ANTIVIRAL PROPHYLAXIS
     Dosage: (100 MG,1 IN 1 M)
     Dates: start: 20080925, end: 20080925
  6. SYNAGIS [Suspect]
     Indication: IMMUNISATION
     Dosage: (100 MG,1 IN 1 M)
     Dates: start: 20080925, end: 20080925
  7. ACETYLASLICYLIC [Concomitant]
  8. ACID (ACETYLSALICYLIC ACID) [Concomitant]
  9. METILDIGOXIN (METILDIGOXIN) [Concomitant]

REACTIONS (2)
  - CONDITION AGGRAVATED [None]
  - HEART DISEASE CONGENITAL [None]
